FAERS Safety Report 10056781 (Version 2)
Quarter: 2014Q4

REPORT INFORMATION
  Report Type: Spontaneous
  Country: US (occurrence: US)
  Receive Date: 20140403
  Receipt Date: 20141030
  Transmission Date: 20150528
  Serious: Yes (Other)
  Sender: FDA-Public Use
  Company Number: CHPA2014US004840

PATIENT
  Sex: Male

DRUGS (2)
  1. PRIVATE LABEL [Suspect]
     Active Substance: NICOTINE
     Indication: SMOKING CESSATION THERAPY
     Dosage: 21 MG, QD
  2. PRIVATE LABEL [Suspect]
     Active Substance: NICOTINE
     Dosage: UNK

REACTIONS (3)
  - Movement disorder [Unknown]
  - Abnormal dreams [Recovered/Resolved]
  - Drug ineffective [Unknown]
